FAERS Safety Report 6755320-2 (Version None)
Quarter: 2010Q2

REPORT INFORMATION
  Report Type: 
  Country: None (occurrence: None)
  Receive Date: 20100524
  Receipt Date: 20100304
  Transmission Date: 20101027
  Serious: No
  Sender: FDA-Public Use
  Company Number: 008682

PATIENT
  Sex: Female

DRUGS (1)
  1. CIMZIA [Suspect]
     Indication: CROHN'S DISEASE
     Dosage: (200 MG X/2 WEEKS SUBCUTANEOUS)
     Route: 058
     Dates: start: 20091007

REACTIONS (2)
  - MUSCULOSKELETAL PAIN [None]
  - PAIN [None]
